FAERS Safety Report 7379605-4 (Version None)
Quarter: 2011Q1

REPORT INFORMATION
  Report Type: 
  Country: None (occurrence: None)
  Receive Date: 20110317
  Receipt Date: 20101102
  Transmission Date: 20110831
  Serious: Yes (Life-Threatening, Hospitalization, Other)
  Sender: FDA-Public Use
  Company Number: 2010IP000136

PATIENT
  Age: 80 Year
  Sex: Male
  Weight: 87.9 kg

DRUGS (6)
  1. PREDNISONE [Concomitant]
  2. XIBROM [Suspect]
     Indication: CATARACT OPERATION
     Dosage: 1 GTT, BID, OPH
     Route: 047
     Dates: start: 20100910, end: 20100921
  3. VIGAMOX [Concomitant]
  4. PRED FORTE [Concomitant]
  5. PULMICORT [Concomitant]
  6. ALBUTEROL [Concomitant]

REACTIONS (4)
  - CONSTIPATION [None]
  - ANAPHYLACTIC REACTION [None]
  - DYSPNOEA [None]
  - ABDOMINAL PAIN [None]
